FAERS Safety Report 14172609 (Version 1)
Quarter: 2017Q4

REPORT INFORMATION
  Report Type: Spontaneous
  Country: US (occurrence: None)
  Receive Date: 20171108
  Receipt Date: 20171108
  Transmission Date: 20180321
  Serious: Yes (Other)
  Sender: FDA-Public Use
  Company Number: None

PATIENT
  Age: 76 Year
  Sex: Male
  Weight: 104.33 kg

DRUGS (15)
  1. CIALIS [Concomitant]
     Active Substance: TADALAFIL
  2. MSM [Concomitant]
     Active Substance: DIMETHYL SULFONE
  3. VITAMIN B-6 [Concomitant]
     Active Substance: PYRIDOXINE
  4. NAPROSYN [Concomitant]
     Active Substance: NAPROXEN
  5. AMLODIPINE [Concomitant]
     Active Substance: AMLODIPINE BESYLATE
  6. LOSARTAN HYDROCHLOROTHIAZIDE [Concomitant]
     Active Substance: HYDROCHLOROTHIAZIDE\LOSARTAN POTASSIUM
  7. METFORMIN [Concomitant]
     Active Substance: METFORMIN HYDROCHLORIDE
  8. ONETOUCH ULTRA TEST STRIPS [Concomitant]
  9. PROBIOTIC [Concomitant]
     Active Substance: PROBIOTICS NOS
  10. VITAMIN B12 [Concomitant]
     Active Substance: CYANOCOBALAMIN
  11. FOLBIC [Concomitant]
     Active Substance: CYANOCOBALAMIN\FOLIC ACID\PYRIDOXINE
  12. ASPIRIN. [Concomitant]
     Active Substance: ASPIRIN
  13. COENZYME Q10 [Concomitant]
     Active Substance: UBIDECARENONE
  14. GARLIC. [Concomitant]
     Active Substance: GARLIC
  15. ATORVASTATIN [Suspect]
     Active Substance: ATORVASTATIN
     Indication: BLOOD CHOLESTEROL
     Route: 048
     Dates: end: 201705

REACTIONS (2)
  - Muscle spasms [None]
  - Gait inability [None]

NARRATIVE: CASE EVENT DATE: 201403
